FAERS Safety Report 7095562-2 (Version None)
Quarter: 2010Q4

REPORT INFORMATION
  Report Type: 
  Country: None (occurrence: None)
  Receive Date: 20101111
  Receipt Date: 20101028
  Transmission Date: 20110411
  Serious: Yes (Other)
  Sender: FDA-Public Use
  Company Number: US-JNJFOC-20101102445

PATIENT
  Age: 27 Year
  Sex: Female

DRUGS (8)
  1. TOPAMAX [Suspect]
     Indication: MIGRAINE PROPHYLAXIS
     Route: 048
  2. LOESTRIN 1.5/30 [Concomitant]
     Route: 065
  3. PAXIL [Concomitant]
     Route: 065
  4. WELLBUTRIN [Concomitant]
     Route: 065
  5. ZYRTEC [Concomitant]
     Route: 065
  6. ACIPHEX [Concomitant]
     Route: 065
  7. VITAMIN TAB [Concomitant]
     Route: 065
  8. COUMADIN [Concomitant]
     Route: 065

REACTIONS (5)
  - CHOROIDAL DETACHMENT [None]
  - CHOROIDAL EFFUSION [None]
  - CILIARY BODY DISORDER [None]
  - INTRAOCULAR PRESSURE INCREASED [None]
  - MYOPIA [None]
